FAERS Safety Report 19705239 (Version 3)
Quarter: 2021Q3

REPORT INFORMATION
  Report Type: Report from Study
  Country: US (occurrence: US)
  Receive Date: 20210816
  Receipt Date: 20210820
  Transmission Date: 20211014
  Serious: No
  Sender: FDA-Public Use
  Company Number: NVSC2021US177701

PATIENT
  Sex: Female

DRUGS (1)
  1. KISQALI [Suspect]
     Active Substance: RIBOCICLIB
     Indication: PRODUCT USED FOR UNKNOWN INDICATION
     Dosage: UNK
     Route: 065

REACTIONS (9)
  - Rash erythematous [Unknown]
  - Product dose omission issue [Unknown]
  - Rash [Unknown]
  - Ill-defined disorder [Unknown]
  - Illness [Unknown]
  - Gait disturbance [Unknown]
  - Speech disorder [Unknown]
  - Dry skin [Unknown]
  - Asthenia [Unknown]
